FAERS Safety Report 5619811-X (Version None)
Quarter: 2008Q1

REPORT INFORMATION
  Report Type: 
  Country: None (occurrence: None)
  Receive Date: 20080208
  Receipt Date: 20080130
  Transmission Date: 20080703
  Serious: Yes (Hospitalization, Other)
  Sender: FDA-Public Use
  Company Number: PHBS2007JP11749

PATIENT
  Age: 74 Year
  Sex: Male
  Weight: 75 kg

DRUGS (2)
  1. GLEEVEC [Suspect]
     Indication: CHRONIC MYELOID LEUKAEMIA
     Dosage: 400 MG/D
     Route: 048
     Dates: start: 20020917, end: 20040915
  2. GLEEVEC [Suspect]
     Dosage: 300MG/D
     Route: 048
     Dates: start: 20040916

REACTIONS (7)
  - ACTIVITIES OF DAILY LIVING IMPAIRED [None]
  - BLOOD GLUCOSE INCREASED [None]
  - CEREBRAL INFARCTION [None]
  - HAEMATOCRIT DECREASED [None]
  - HAEMOGLOBIN DECREASED [None]
  - OEDEMA [None]
  - RED BLOOD CELL COUNT DECREASED [None]
